FAERS Safety Report 16443379 (Version 2)
Quarter: 2019Q3

REPORT INFORMATION
  Report Type: Report from Study
  Country: None (occurrence: US)
  Receive Date: 20190618
  Receipt Date: 20190730
  Transmission Date: 20191004
  Serious: Yes (Other)
  Sender: FDA-Public Use
  Company Number: US-ABBVIE-19K-163-2822249-00

PATIENT
  Age: 67 Year
  Sex: Female
  Weight: 89.44 kg

DRUGS (1)
  1. HUMIRA [Suspect]
     Active Substance: ADALIMUMAB
     Indication: RHEUMATOID ARTHRITIS
     Route: 058
     Dates: start: 2017

REACTIONS (1)
  - Pharyngeal polyp [Not Recovered/Not Resolved]

NARRATIVE: CASE EVENT DATE: 201904
